FAERS Safety Report 9707812 (Version 2)
Quarter: 2013Q4

REPORT INFORMATION
  Report Type: Spontaneous
  Country: DZ (occurrence: DZ)
  Receive Date: 20131125
  Receipt Date: 20131218
  Transmission Date: 20140711
  Serious: Yes (Hospitalization)
  Sender: FDA-Public Use
  Company Number: DZ-NOVOPROD-393096

PATIENT
  Age: 6 Day
  Sex: Male

DRUGS (1)
  1. NOVOSEVEN [Suspect]
     Indication: FACTOR VII DEFICIENCY
     Dosage: 30 UG/KG 3 TIMES PER WEEK

REACTIONS (9)
  - Convulsion [Unknown]
  - Haemorrhage intracranial [Unknown]
  - Hydrocephalus [Unknown]
  - Subarachnoid haemorrhage [Unknown]
  - Cerebral haemorrhage [Unknown]
  - Peritoneal haemorrhage [Unknown]
  - Peritoneal haemorrhage [Unknown]
  - Rectal haemorrhage [Unknown]
  - Anti factor VII antibody positive [Unknown]
